FAERS Safety Report 20146293 (Version 1)
Quarter: 2021Q4

REPORT INFORMATION
  Report Type: Spontaneous
  Country: US (occurrence: None)
  Receive Date: 20211203
  Receipt Date: 20211203
  Transmission Date: 20220303
  Serious: Yes (Hospitalization)
  Sender: FDA-Public Use
  Company Number: None

PATIENT
  Age: 35 Year
  Sex: Female
  Weight: 80.55 kg

DRUGS (1)
  1. TOPIRAMATE [Suspect]
     Active Substance: TOPIRAMATE
     Indication: Migraine
     Dosage: OTHER QUANTITY : 1 TABLET(S);?FREQUENCY : AT BEDTIME;?
     Route: 048
     Dates: start: 20211112, end: 20211112

REACTIONS (9)
  - Pruritus [None]
  - Paraesthesia [None]
  - Dizziness [None]
  - Dyspnoea [None]
  - Chest pain [None]
  - Anxiety [None]
  - Cold sweat [None]
  - Gait disturbance [None]
  - Spinal disorder [None]

NARRATIVE: CASE EVENT DATE: 20211112
